FAERS Safety Report 9579626 (Version 1)
Quarter: 2013Q4

REPORT INFORMATION
  Report Type: Spontaneous
  Country: US (occurrence: US)
  Receive Date: 20131002
  Receipt Date: 20131002
  Transmission Date: 20140711
  Serious: Yes (Other)
  Sender: FDA-Public Use
  Company Number: US-MERCK-1310USA000050

PATIENT
  Age: 64 Year
  Sex: Female

DRUGS (9)
  1. JANUMET [Suspect]
     Indication: DIABETES MELLITUS
     Dosage: HAD BEEN USING JANUMET FOR A MONTH OR TWO
     Route: 048
  2. ATENOLOL [Concomitant]
  3. AMARYL [Concomitant]
  4. ZETIA [Concomitant]
  5. ADVAIR [Concomitant]
  6. TRAMADOL HYDROCHLORIDE [Concomitant]
  7. DILTIAZEM HYDROCHLORIDE [Concomitant]
  8. ZESTRIL [Concomitant]
  9. PRAVACOR [Concomitant]

REACTIONS (2)
  - Pancreatitis [Recovered/Resolved]
  - Back pain [Recovered/Resolved]
